FAERS Safety Report 9498396 (Version 2)
Quarter: 2013Q3

REPORT INFORMATION
  Report Type: Spontaneous
  Country: RS (occurrence: RS)
  Receive Date: 20130904
  Receipt Date: 20130920
  Transmission Date: 20140515
  Serious: Yes (Other)
  Sender: FDA-Public Use
  Company Number: RS-BAYER-2013-106332

PATIENT
  Age: 33 Year
  Sex: Female

DRUGS (2)
  1. MAGNEVIST [Suspect]
     Indication: IMAGING PROCEDURE
     Dosage: 20 ML, ONCE
     Route: 042
     Dates: start: 20130830, end: 20130830
  2. MAGNEVIST [Suspect]
     Indication: BREAST NEOPLASM

REACTIONS (4)
  - Rash macular [Recovered/Resolved]
  - Blister [Recovered/Resolved]
  - Erythema [Recovered/Resolved]
  - Pruritus generalised [Recovered/Resolved]
